FAERS Safety Report 9457568 (Version 2)
Quarter: 2013Q4

REPORT INFORMATION
  Report Type: Spontaneous
  Country: US (occurrence: None)
  Receive Date: 20130809
  Receipt Date: 20131108
  Transmission Date: 20140711
  Serious: Yes (Hospitalization)
  Sender: FDA-Public Use
  Company Number: ACO_37756_2013

PATIENT
  Age: 82 Year
  Sex: Female
  Weight: 45.8 kg

DRUGS (5)
  1. AMPYRA [Suspect]
     Indication: PRODUCT USED FOR UNKNOWN INDICATION
     Route: 048
  2. AMLODIPINE (AMLODIPINE BESILATE) [Concomitant]
  3. FERREX (POLYSACCHARIDE-IRON COMPLEX) [Concomitant]
  4. HYDROCO/APAP [Concomitant]
  5. AVONEX (INTERFERON BETA-1A) [Concomitant]

REACTIONS (3)
  - Vision blurred [None]
  - Visual impairment [None]
  - Urinary tract infection [None]
